FAERS Safety Report 5961121-5 (Version None)
Quarter: 2008Q4

REPORT INFORMATION
  Report Type: 
  Country: None (occurrence: None)
  Receive Date: 20081121
  Receipt Date: 20081110
  Transmission Date: 20090506
  Serious: Yes (Other)
  Sender: FDA-Public Use
  Company Number: US-ROCHE-593988

PATIENT
  Age: 66 Year
  Sex: Male

DRUGS (6)
  1. BONIVA [Suspect]
     Indication: OSTEOPOROSIS
     Dosage: FORM: PILL
     Route: 048
     Dates: start: 20071213
  2. LISINOPRIL [Concomitant]
     Dosage: FREQUENCY: QD
     Route: 048
     Dates: start: 20071018
  3. ASTELIN [Concomitant]
     Dosage: STRENGTH AND FORMULATION: 1 SPRAY
     Route: 045
     Dates: start: 20070101
  4. ADVAIR DISKUS 100/50 [Concomitant]
     Dosage: FORM: T PUFF
     Route: 055
     Dates: start: 20070101
  5. CIALIS [Concomitant]
     Dosage: FREQUENCY: PRN
     Route: 048
     Dates: start: 20070101
  6. ZYRTEC [Concomitant]
     Dosage: FREQUENCY: QD
     Route: 048
     Dates: start: 20060101

REACTIONS (2)
  - ARRHYTHMIA [None]
  - ATRIAL FIBRILLATION [None]
